FAERS Safety Report 22059205 (Version 1)
Quarter: 2023Q1

REPORT INFORMATION
  Report Type: Report from Study
  Country: US (occurrence: US)
  Receive Date: 20230303
  Receipt Date: 20230303
  Transmission Date: 20230417
  Serious: Yes (Other)
  Sender: FDA-Public Use
  Company Number: US-ABBVIE-4325351

PATIENT
  Age: 42 Year
  Sex: Female

DRUGS (1)
  1. RINVOQ [Suspect]
     Active Substance: UPADACITINIB
     Indication: Rheumatoid arthritis
     Route: 048
     Dates: start: 20221120

REACTIONS (6)
  - Systemic lupus erythematosus [Unknown]
  - Migraine [Not Recovered/Not Resolved]
  - Fibromyalgia [Unknown]
  - Hallucination [Unknown]
  - Pain of skin [Unknown]
  - Eye disorder [Unknown]

NARRATIVE: CASE EVENT DATE: 20220227
